FAERS Safety Report 23185656 (Version 2)
Quarter: 2024Q1

REPORT INFORMATION
  Report Type: Spontaneous
  Country: US (occurrence: US)
  Receive Date: 20231115
  Receipt Date: 20240116
  Transmission Date: 20240410
  Serious: Yes (Other)
  Sender: FDA-Public Use
  Company Number: US-BAYER-2023A161382

PATIENT
  Age: 33 Year
  Sex: Female
  Weight: 135 kg

DRUGS (3)
  1. GADAVIST [Suspect]
     Active Substance: GADOBUTROL
     Indication: Magnetic resonance imaging head
     Dosage: UNK UNK, ONCE
     Dates: start: 20231010, end: 20231010
  2. GADAVIST [Suspect]
     Active Substance: GADOBUTROL
     Indication: Headache
  3. GADAVIST [Suspect]
     Active Substance: GADOBUTROL
     Indication: Vision blurred

REACTIONS (3)
  - Nausea [None]
  - Vomiting [None]
  - Throat tightness [None]

NARRATIVE: CASE EVENT DATE: 20231010
